FAERS Safety Report 5909519-5 (Version None)
Quarter: 2008Q4

REPORT INFORMATION
  Report Type: 
  Country: None (occurrence: None)
  Receive Date: 20081002
  Receipt Date: 20080926
  Transmission Date: 20090506
  Serious: Yes (Hospitalization, Other)
  Sender: FDA-Public Use
  Company Number: 2007SP025301

PATIENT
  Age: 41 Year
  Sex: Male

DRUGS (2)
  1. INTRON A [Suspect]
     Indication: MALIGNANT MELANOMA
     Dosage: 42 MIU;QD;IV  20 MIU;TIW;SC
     Route: 042
     Dates: start: 20071110, end: 20071210
  2. INTRON A [Suspect]
     Indication: MALIGNANT MELANOMA
     Dosage: 42 MIU;QD;IV  20 MIU;TIW;SC
     Route: 042
     Dates: start: 20071210, end: 20071221

REACTIONS (2)
  - SPLENIC INFARCTION [None]
  - VASCULITIS GASTROINTESTINAL [None]
